FAERS Safety Report 24716844 (Version 1)
Quarter: 2024Q4

REPORT INFORMATION
  Report Type: Report from Study
  Country: US (occurrence: US)
  Receive Date: 20241210
  Receipt Date: 20241210
  Transmission Date: 20250115
  Serious: Yes (Hospitalization)
  Sender: GILEAD
  Company Number: US-GILEAD-2024-0694189

PATIENT
  Age: 39 Year
  Sex: Male

DRUGS (8)
  1. AZTREONAM LYSINE [Suspect]
     Active Substance: AZTREONAM LYSINE
     Indication: Cystic fibrosis
     Dosage: 75 MG, TID [INHALE 75MG INTO THE LUNGS VIA NEBULIZER 3 TIMES DAILY FOR 28 DAYS ON, 28 DAYS OFF]
     Route: 055
     Dates: start: 20180328, end: 20240712
  2. KALYDECO [Concomitant]
     Active Substance: IVACAFTOR
     Dosage: UNK
  3. ASPERCREME PAIN RELIEVING [Concomitant]
     Active Substance: TROLAMINE SALICYLATE
     Dosage: UNK
  4. TYLENOL [Concomitant]
     Active Substance: ACETAMINOPHEN
     Dosage: UNK
  5. RETINOL [Concomitant]
     Active Substance: RETINOL
     Dosage: UNK
  6. ASPIRIN [Concomitant]
     Active Substance: ASPIRIN
  7. D3 1000 IU [Concomitant]
  8. TUMS ULTRA [Concomitant]
     Active Substance: CALCIUM CARBONATE

REACTIONS (3)
  - Enteritis [Unknown]
  - Sleep disorder [Unknown]
  - Loss of personal independence in daily activities [Unknown]
